FAERS Safety Report 9261613 (Version 1)
Quarter: 2013Q2

REPORT INFORMATION
  Report Type: Spontaneous
  Country: US (occurrence: US)
  Receive Date: 20130429
  Receipt Date: 20130429
  Transmission Date: 20140414
  Serious: No
  Sender: FDA-Public Use
  Company Number: US-PFIZER INC-2013130226

PATIENT
  Age: 58 Year
  Sex: Male
  Weight: 104.31 kg

DRUGS (3)
  1. LYRICA [Suspect]
     Indication: DIABETIC NEUROPATHY
     Dosage: UNK
     Route: 048
     Dates: start: 2011
  2. LYRICA [Suspect]
     Dosage: 300 MG, 2X/DAY
     Route: 048
  3. PREDNISONE [Concomitant]
     Indication: ARTHRITIS
     Dosage: UNK

REACTIONS (4)
  - Prescribed overdose [Unknown]
  - Off label use [Unknown]
  - Weight increased [Not Recovered/Not Resolved]
  - Logorrhoea [Not Recovered/Not Resolved]
